FAERS Safety Report 12500312 (Version 3)
Quarter: 2017Q4

REPORT INFORMATION
  Report Type: Spontaneous
  Country: US (occurrence: US)
  Receive Date: 20160627
  Receipt Date: 20171109
  Transmission Date: 20180320
  Serious: No
  Sender: FDA-Public Use
  Company Number: US-PFIZER INC-2016289192

PATIENT
  Age: 50 Year
  Sex: Female
  Weight: 72.56 kg

DRUGS (2)
  1. IBRANCE [Suspect]
     Active Substance: PALBOCICLIB
     Indication: BREAST CANCER METASTATIC
     Dosage: 100 MG, CYCLIC (21 DAYS ON/ 7 DAYS OFF)
     Route: 048
     Dates: start: 20160504
  2. IBRANCE [Suspect]
     Active Substance: PALBOCICLIB
     Dosage: 100 MG, CYCLIC (D1-21 Q28 DAYS )
     Route: 048
     Dates: start: 20170504, end: 201711

REACTIONS (3)
  - Nausea [Unknown]
  - Diarrhoea [Unknown]
  - Neoplasm progression [Unknown]
